FAERS Safety Report 23516417 (Version 1)
Quarter: 2024Q1

REPORT INFORMATION
  Report Type: Report from Study
  Country: CA (occurrence: CA)
  Receive Date: 20240213
  Receipt Date: 20240213
  Transmission Date: 20240410
  Serious: Yes (Hospitalization, Other)
  Sender: FDA-Public Use
  Company Number: CA-GLAXOSMITHKLINE-CA2023173111

PATIENT

DRUGS (1)
  1. MEPOLIZUMAB [Suspect]
     Active Substance: MEPOLIZUMAB
     Indication: Asthma
     Dosage: 100 MG, Q4W
     Route: 058
     Dates: start: 20201112

REACTIONS (7)
  - Urinary tract infection [Unknown]
  - Dehydration [Unknown]
  - Sepsis [Unknown]
  - Pyrexia [Unknown]
  - Mobility decreased [Unknown]
  - Coronavirus infection [Unknown]
  - SARS-CoV-2 test positive [Unknown]
